FAERS Safety Report 10426820 (Version 1)
Quarter: 2014Q3

REPORT INFORMATION
  Report Type: Spontaneous
  Country: US (occurrence: US)
  Receive Date: 20140903
  Receipt Date: 20140903
  Transmission Date: 20150326
  Serious: No
  Sender: FDA-Public Use
  Company Number: US-BANPHARM-20131724

PATIENT
  Age: 36 Year
  Sex: Female

DRUGS (2)
  1. ZYRTEC TABLET 10 MG [Concomitant]
     Indication: SEASONAL ALLERGY
     Dosage: 1 DF, PRN,
  2. ZYRTEC [Suspect]
     Active Substance: CETIRIZINE HYDROCHLORIDE
     Indication: SEASONAL ALLERGY
     Dosage: 1 DF,
     Route: 048
     Dates: start: 20130918, end: 20130918

REACTIONS (2)
  - Drug effect incomplete [Unknown]
  - Expired product administered [Unknown]
